FAERS Safety Report 10436420 (Version 1)
Quarter: 2014Q3

REPORT INFORMATION
  Report Type: Spontaneous
  Country: US (occurrence: US)
  Receive Date: 20140908
  Receipt Date: 20140908
  Transmission Date: 20150326
  Serious: Yes (Other)
  Sender: FDA-Public Use
  Company Number: US-PFIZER INC-2014245238

PATIENT
  Age: 43 Year
  Sex: Male

DRUGS (8)
  1. OPANA ER [Concomitant]
     Active Substance: OXYMORPHONE HYDROCHLORIDE
     Indication: PAIN
     Dosage: UNK
     Route: 048
     Dates: start: 2012
  2. OXYMORPHONE [Concomitant]
     Active Substance: OXYMORPHONE
     Indication: PAIN
     Dosage: 10 MG, UNK
     Route: 048
  3. OPANA ER [Suspect]
     Active Substance: OXYMORPHONE HYDROCHLORIDE
     Dosage: 30 MG, ONE TABLET EVERY 12 HOURS
     Route: 048
     Dates: start: 201204
  4. OPANA IR [Concomitant]
     Indication: BREAKTHROUGH PAIN
     Dosage: 10 MG, TWICE DAILY AS NEEDED
     Route: 048
  5. XANAX [Suspect]
     Active Substance: ALPRAZOLAM
     Dosage: UNK
  6. OPANA ER [Suspect]
     Active Substance: OXYMORPHONE HYDROCHLORIDE
     Indication: PAIN
     Dosage: 40 MG, UNK
     Route: 048
  7. OPANA IR [Concomitant]
     Indication: PAIN
  8. TRAMADOL [Concomitant]
     Active Substance: TRAMADOL
     Indication: PAIN
     Dosage: 50 MG, UP TO 8 TABLETS PER DAY
     Route: 048

REACTIONS (8)
  - Drug screen negative [Unknown]
  - Drug ineffective [Unknown]
  - Drug screen positive [Unknown]
  - Drug abuse [Unknown]
  - Cough [Unknown]
  - Fall [Unknown]
  - Diarrhoea [Unknown]
  - Muscle spasms [Unknown]

NARRATIVE: CASE EVENT DATE: 201204
